FAERS Safety Report 16358455 (Version 1)
Quarter: 2019Q2

REPORT INFORMATION
  Report Type: Spontaneous
  Country: CN (occurrence: CN)
  Receive Date: 20190527
  Receipt Date: 20190527
  Transmission Date: 20190711
  Serious: Yes (Hospitalization, Other)
  Sender: FDA-Public Use
  Company Number: CN-PFIZER INC-2019223292

PATIENT
  Age: 80 Year
  Sex: Female
  Weight: 63 kg

DRUGS (1)
  1. NORVASC [Suspect]
     Active Substance: AMLODIPINE BESYLATE
     Indication: BLOOD PRESSURE INCREASED
     Dosage: 5 MG, 1X/DAY
     Route: 048
     Dates: start: 20090101, end: 20190418

REACTIONS (3)
  - Cerebrovascular accident [Unknown]
  - Oedema peripheral [Recovering/Resolving]
  - Dizziness [Unknown]

NARRATIVE: CASE EVENT DATE: 20190209
